FAERS Safety Report 17591043 (Version 1)
Quarter: 2020Q1

REPORT INFORMATION
  Report Type: Spontaneous
  Country: US (occurrence: US)
  Receive Date: 20200325
  Receipt Date: 20200325
  Transmission Date: 20200409
  Serious: No
  Sender: FDA-Public Use
  Company Number: None

PATIENT
  Age: 61 Year
  Sex: Male
  Weight: 90.63 kg

DRUGS (1)
  1. PREGABALIN (PREGABALIN 150MG CAP, ORAL) [Suspect]
     Active Substance: PREGABALIN
     Indication: DIABETES MELLITUS
     Route: 048
     Dates: start: 20180515, end: 20180816

REACTIONS (1)
  - Depression [None]

NARRATIVE: CASE EVENT DATE: 20180816
